FAERS Safety Report 16119314 (Version 2)
Quarter: 2020Q4

REPORT INFORMATION
  Report Type: Spontaneous
  Country: US (occurrence: US)
  Receive Date: 20190326
  Receipt Date: 20201006
  Transmission Date: 20210113
  Serious: Yes (Other)
  Sender: FDA-Public Use
  Company Number: US-PFIZER INC-2018150873

PATIENT
  Age: 77 Year
  Sex: Female
  Weight: 57.61 kg

DRUGS (2)
  1. LYRICA [Suspect]
     Active Substance: PREGABALIN
     Indication: FIBROMYALGIA
     Dosage: UNK
  2. LYRICA [Suspect]
     Active Substance: PREGABALIN
     Dosage: 150 MG, 2X/DAY
     Route: 048

REACTIONS (4)
  - Insomnia [Unknown]
  - Pain [Not Recovered/Not Resolved]
  - Parkinson^s disease [Unknown]
  - Stress [Unknown]

NARRATIVE: CASE EVENT DATE: 202009
